FAERS Safety Report 23080878 (Version 1)
Quarter: 2023Q4

REPORT INFORMATION
  Report Type: Report from Study
  Country: IT (occurrence: IT)
  Receive Date: 20231018
  Receipt Date: 20231018
  Transmission Date: 20240110
  Serious: Yes (Hospitalization)
  Sender: FDA-Public Use
  Company Number: None

PATIENT
  Age: 55 Year
  Sex: Female

DRUGS (1)
  1. QUETIAPINE [Suspect]
     Active Substance: QUETIAPINE
     Indication: Product used for unknown indication
     Dosage: FREQUENCY OF ADMINISTRATION: TOTAL ADMINISTRATION
     Route: 048
     Dates: start: 20230925, end: 20230925

REACTIONS (2)
  - Coma [Unknown]
  - Drug abuse [Unknown]

NARRATIVE: CASE EVENT DATE: 20230925
